FAERS Safety Report 8458965-7 (Version None)
Quarter: 2012Q2

REPORT INFORMATION
  Report Type: 
  Country: None (occurrence: None)
  Receive Date: 20120622
  Receipt Date: 20120611
  Transmission Date: 20120825
  Serious: Yes (Death, Life-Threatening, Hospitalization, Disabling)
  Sender: FDA-Public Use
  Company Number: US-ROCHE-1054992

PATIENT
  Sex: Female
  Weight: 57.3 kg

DRUGS (3)
  1. HERCEPTIN [Suspect]
     Indication: BREAST CANCER METASTATIC
     Dosage: LAST DOSE PRIOR TO SAE 09/MAR/2012, LAST DOSE TAKEN: 344 MG
     Route: 042
     Dates: start: 20120106
  2. DOCETAXEL [Suspect]
     Indication: BREAST CANCER METASTATIC
     Dosage: LAST DOSE PRIOR TO SAE 09/MAR/2012, LAST DOSE TAKEN: 167 MG
     Route: 042
     Dates: start: 20120106
  3. PACLITAXEL [Suspect]
     Indication: BREAST CANCER METASTATIC
     Dosage: LAST DOSE PRIOR TO SAE: 09/MAR/2012
     Route: 042

REACTIONS (7)
  - HAEMORRHAGE INTRACRANIAL [None]
  - HYPOTENSION [None]
  - CONVULSION [None]
  - SEPSIS [None]
  - FAILURE TO THRIVE [None]
  - ACUTE RESPIRATORY FAILURE [None]
  - PNEUMONIA STREPTOCOCCAL [None]
